FAERS Safety Report 23350056 (Version 5)
Quarter: 2024Q2

REPORT INFORMATION
  Report Type: Spontaneous
  Country: KR (occurrence: KR)
  Receive Date: 20231229
  Receipt Date: 20240416
  Transmission Date: 20240715
  Serious: Yes (Hospitalization, Other)
  Sender: FDA-Public Use
  Company Number: KR-Accord-397499

PATIENT
  Age: 62 Year
  Sex: Male
  Weight: 39.1 kg

DRUGS (49)
  1. CARBOPLATIN [Suspect]
     Active Substance: CARBOPLATIN
     Indication: Squamous cell carcinoma of head and neck
     Dosage: 5 AUC, 1Q3W
     Route: 042
     Dates: start: 20230811, end: 20230811
  2. FLUOROURACIL [Suspect]
     Active Substance: FLUOROURACIL
     Indication: Squamous cell carcinoma of head and neck
     Dosage: QD
     Route: 042
     Dates: start: 20230811, end: 20230815
  3. PEMBROLIZUMAB [Concomitant]
     Active Substance: PEMBROLIZUMAB
     Indication: Squamous cell carcinoma of head and neck
     Dosage: 1Q3W
     Route: 042
     Dates: start: 20230811, end: 20230911
  4. AMPICILLIN SODIUM\SULBACTAM SODIUM [Concomitant]
     Active Substance: AMPICILLIN SODIUM\SULBACTAM SODIUM
     Dates: start: 20230906, end: 20231005
  5. BIPHENYL DICARBOXYLATE [Concomitant]
     Dates: start: 20230919, end: 20230920
  6. CELECOXIB [Concomitant]
     Active Substance: CELECOXIB
     Dates: start: 20231021
  7. CHLORHEXIDINE GLUCONATE [Concomitant]
     Active Substance: CHLORHEXIDINE GLUCONATE
     Dates: start: 20230721
  8. CHLORPHENIRAMINE MALEATE [Concomitant]
     Active Substance: CHLORPHENIRAMINE MALEATE
     Dates: start: 20230811
  9. CIMETIDINE [Concomitant]
     Active Substance: CIMETIDINE
     Dates: start: 20230811
  10. DEXAMETHASONE [Concomitant]
     Active Substance: DEXAMETHASONE
     Dates: start: 20230811, end: 20231127
  11. DICLOFENAC [Concomitant]
     Active Substance: DICLOFENAC
     Dates: start: 20230821
  12. ESOMEPRAZOLE [Concomitant]
     Active Substance: ESOMEPRAZOLE
     Dates: start: 20230911, end: 20231018
  13. EPINEPHRINE HYDROCHLORIDE [Concomitant]
     Active Substance: EPINEPHRINE HYDROCHLORIDE
     Dates: start: 20230918, end: 20230918
  14. FENTANYL CITRATE [Concomitant]
     Active Substance: FENTANYL CITRATE
     Dates: start: 20230816
  15. HYDROCORTISONE SODIUM SUCCINATE [Concomitant]
     Active Substance: HYDROCORTISONE SODIUM SUCCINATE
     Dates: start: 20230921, end: 20230922
  16. LACTULOSE [Concomitant]
     Active Substance: LACTULOSE
     Dates: start: 20230830, end: 20231113
  17. LANSOPRAZOLE [Concomitant]
     Active Substance: LANSOPRAZOLE
     Dates: start: 20231019
  18. MAGNESIUM SULFATE [Concomitant]
     Active Substance: MAGNESIUM SULFATE\MAGNESIUM SULFATE HEPTAHYDRATE
     Dates: start: 20230921, end: 20230924
  19. MOSAPRIDE CITRATE [Concomitant]
     Active Substance: MOSAPRIDE CITRATE
     Dates: start: 20230829, end: 20230921
  20. METHYLPREDNISOLONE SODIUM SUCCINATE [Concomitant]
     Active Substance: METHYLPREDNISOLONE SODIUM SUCCINATE
     Dates: start: 20230920, end: 20231001
  21. NAPROXEN [Concomitant]
     Active Substance: NAPROXEN
     Dates: start: 20230911, end: 20231015
  22. NETUPITANT\PALONOSETRON HYDROCHLORIDE [Concomitant]
     Active Substance: NETUPITANT\PALONOSETRON HYDROCHLORIDE
     Dates: start: 20230811, end: 20231106
  23. ORNITHINE ASPARTATE [Concomitant]
     Active Substance: ORNITHINE ASPARTATE
     Dates: start: 20230917, end: 20231005
  24. MEPERIDINE HYDROCHLORIDE [Concomitant]
     Active Substance: MEPERIDINE HYDROCHLORIDE
     Dates: start: 20230918, end: 20230918
  25. POTASSIUM CHLORIDE [Concomitant]
     Active Substance: POTASSIUM CHLORIDE
     Dates: start: 20230922, end: 20230923
  26. POTASSIUM PHOSPHATE, MONOBASIC [Concomitant]
     Active Substance: POTASSIUM PHOSPHATE, MONOBASIC
     Dates: start: 20230921, end: 20230924
  27. PREDNISOLONE [Concomitant]
     Active Substance: PREDNISOLONE
     Dates: start: 20231005, end: 20231016
  28. DIETARY SUPPLEMENT\HERBALS\MILK THISTLE [Concomitant]
     Active Substance: MILK THISTLE
     Dates: start: 20230921, end: 20231017
  29. SODIUM CHLORIDE [Concomitant]
     Active Substance: SODIUM CHLORIDE
     Dates: start: 20230918, end: 20230919
  30. THIAMINE [Concomitant]
     Active Substance: THIAMINE
     Dates: start: 20230917, end: 20230918
  31. URSODIOL [Concomitant]
     Active Substance: URSODIOL
     Dates: start: 20230829, end: 20231126
  32. REBAMIPIDE [Concomitant]
     Active Substance: REBAMIPIDE
     Dates: start: 20231019
  33. CEFEPIME HYDROCHLORIDE [Concomitant]
     Active Substance: CEFEPIME HYDROCHLORIDE
     Dates: start: 20231020, end: 20231030
  34. GLUTATHIONE [Concomitant]
     Active Substance: GLUTATHIONE
     Dates: start: 20231014, end: 20231014
  35. ACETYLCYSTEINE [Concomitant]
     Active Substance: ACETYLCYSTEINE
     Dates: start: 20231017, end: 20231030
  36. ALMAGATE [Concomitant]
     Active Substance: ALMAGATE
     Dates: start: 20231018, end: 20231112
  37. PROPOFOL [Concomitant]
     Active Substance: PROPOFOL
     Dates: start: 20231018, end: 20231018
  38. POTASSIUM CHLORIDE\SODIUM CHLORIDE [Concomitant]
     Active Substance: POTASSIUM CHLORIDE\SODIUM CHLORIDE
     Dates: start: 20231026, end: 20231030
  39. HYDROCORTISONE SODIUM SUCCINATE [Concomitant]
     Active Substance: HYDROCORTISONE SODIUM SUCCINATE
     Dates: start: 20231028, end: 20231028
  40. AMINO ACIDS NOS/FATS NOS/GLUCOSE [Concomitant]
     Dates: start: 20230917, end: 20230918
  41. BIPHENYL DICARBOXYLATE [Concomitant]
     Dates: start: 20230921, end: 20231016
  42. METHYLPREDNISOLONE [Concomitant]
     Active Substance: METHYLPREDNISOLONE
     Dates: start: 20231002, end: 20231004
  43. MYCOPHENOLATE MOFETIL [Concomitant]
     Active Substance: MYCOPHENOLATE MOFETIL
     Dates: start: 20230925, end: 20231007
  44. BACLOFEN [Concomitant]
     Active Substance: BACLOFEN
     Dates: start: 20230926, end: 20230926
  45. AMMONIUM CHLORIDE [Concomitant]
     Active Substance: AMMONIUM CHLORIDE
     Dates: start: 20230928, end: 20230930
  46. AMBROXOL HYDROCHLORIDE [Concomitant]
     Active Substance: AMBROXOL HYDROCHLORIDE
     Dates: start: 20231011, end: 20231020
  47. CARBOPLATIN [Suspect]
     Active Substance: CARBOPLATIN
     Indication: Squamous cell carcinoma of head and neck
     Dosage: 4 AUC, 1Q3W
     Route: 042
     Dates: start: 20230911, end: 20231011
  48. FLUOROURACIL [Suspect]
     Active Substance: FLUOROURACIL
     Indication: Squamous cell carcinoma of head and neck
     Dosage: QD
     Route: 042
     Dates: start: 20230911, end: 20230915
  49. FLUOROURACIL [Suspect]
     Active Substance: FLUOROURACIL
     Indication: Squamous cell carcinoma of head and neck
     Dosage: QD
     Route: 042
     Dates: start: 20231011, end: 20231015

REACTIONS (2)
  - Catheter site haemorrhage [Recovered/Resolved]
  - Febrile neutropenia [Recovered/Resolved]

NARRATIVE: CASE EVENT DATE: 20231014
